FAERS Safety Report 5063611-9 (Version None)
Quarter: 2006Q3

REPORT INFORMATION
  Report Type: 
  Country: None (occurrence: None)
  Receive Date: 20060724
  Receipt Date: 20060606
  Transmission Date: 20061208
  Serious: Yes (Other)
  Sender: FDA-Public Use
  Company Number: 2006087921

PATIENT
  Age: 63 Year
  Sex: Male
  Weight: 83.4619 kg

DRUGS (8)
  1. CADUET [Suspect]
     Indication: BLOOD CHOLESTEROL INCREASED
     Dosage: 10/80MG (1 IN 1 D),
     Dates: start: 20060412, end: 20060519
  2. CADUET [Suspect]
     Indication: HYPERTENSION
     Dosage: 10/80MG (1 IN 1 D),
     Dates: start: 20060412, end: 20060519
  3. FOSAMAX [Concomitant]
  4. BENICAR [Concomitant]
  5. ACEON [Concomitant]
  6. SYNTHROID [Concomitant]
  7. ACTOS [Concomitant]
  8. ZETIA [Concomitant]

REACTIONS (2)
  - BLOOD CHOLESTEROL INCREASED [None]
  - LOW DENSITY LIPOPROTEIN INCREASED [None]
